FAERS Safety Report 4934850-X (Version None)
Quarter: 2006Q1

REPORT INFORMATION
  Report Type: 
  Country: None (occurrence: None)
  Receive Date: 20060302
  Receipt Date: 20060213
  Transmission Date: 20060701
  Serious: Yes (Hospitalization)
  Sender: FDA-Public Use
  Company Number: CA200602001290

PATIENT
  Sex: Male

DRUGS (2)
  1. HUMULIN R [Suspect]
     Indication: DIABETES MELLITUS
     Dosage: DAILY (1/D), SUBCUTANEOUS
     Route: 058
  2. HUMULIN N [Suspect]
     Indication: DIABETES MELLITUS
     Dosage: DAILY (1/D),  SUBCUTANEOUS
     Route: 058

REACTIONS (8)
  - ERYTHEMA [None]
  - INJECTION SITE IRRITATION [None]
  - INJECTION SITE PAIN [None]
  - INJECTION SITE VESICLES [None]
  - LIP ULCERATION [None]
  - PAIN [None]
  - PHARMACEUTICAL PRODUCT COMPLAINT [None]
  - PYREXIA [None]
